FAERS Safety Report 7289474-9 (Version None)
Quarter: 2011Q1

REPORT INFORMATION
  Report Type: 
  Country: None (occurrence: None)
  Receive Date: 20110211
  Receipt Date: 20110128
  Transmission Date: 20110831
  Serious: Yes (Other)
  Sender: FDA-Public Use
  Company Number: US-GENENTECH-305796

PATIENT
  Sex: Male

DRUGS (6)
  1. VINCRISTINE [Suspect]
     Indication: MANTLE CELL LYMPHOMA
     Dosage: UNK
     Route: 065
     Dates: start: 20040601, end: 20071001
  2. CYCLOPHOSPHAMIDE [Suspect]
     Indication: MANTLE CELL LYMPHOMA
     Dosage: UNK
     Route: 065
     Dates: start: 20040601, end: 20071001
  3. PREDNISONE [Suspect]
     Indication: MANTLE CELL LYMPHOMA
     Dosage: UNK
     Route: 065
     Dates: start: 20040601, end: 20071001
  4. BORTEZOMIB [Suspect]
     Indication: MANTLE CELL LYMPHOMA
     Dosage: UNK
     Route: 065
     Dates: start: 20040601, end: 20071001
  5. RITUXIMAB [Suspect]
     Indication: MANTLE CELL LYMPHOMA
     Dosage: 375 MG/M2, UNK
     Route: 065
     Dates: start: 20040601, end: 20071001
  6. DOXORUBICIN [Suspect]
     Indication: MANTLE CELL LYMPHOMA
     Dosage: UNK
     Route: 065
     Dates: start: 20040601, end: 20071001

REACTIONS (1)
  - NEUTROPENIA [None]
